FAERS Safety Report 20421836 (Version 7)
Quarter: 2022Q2

REPORT INFORMATION
  Report Type: Report from Study
  Country: ES (occurrence: None)
  Receive Date: 20220203
  Receipt Date: 20220510
  Transmission Date: 20220721
  Serious: Yes (Hospitalization)
  Sender: FDA-Public Use
  Company Number: ES-ROCHE-2989193

PATIENT
  Age: 60 Year
  Sex: Male
  Weight: 64 kg

DRUGS (41)
  1. ATEZOLIZUMAB [Suspect]
     Active Substance: ATEZOLIZUMAB
     Indication: Pancreatic carcinoma metastatic
     Dosage: ON 16/MAR/2021, LAST DOSE OF 840 MG WAS ADMINISTERED PRIOR TO AE.
     Route: 041
     Dates: start: 20201027
  2. GEMCITABINE [Suspect]
     Active Substance: GEMCITABINE
     Indication: Pancreatic carcinoma metastatic
     Dosage: ON 16/DEC/2021, LAST DOSE OF 1384 MG WAS ADMINISTERED PRIOR TO AE.
     Route: 042
     Dates: start: 20201027
  3. PACLITAXEL [Suspect]
     Active Substance: PACLITAXEL
     Indication: Pancreatic carcinoma metastatic
     Dosage: ON 16/DEC/2021, LAST DOSE OF 125 MG WAS ADMINISTERED PRIOR TO AE.
     Route: 042
     Dates: start: 20201027
  4. BEVACIZUMAB [Suspect]
     Active Substance: BEVACIZUMAB
     Indication: Pancreatic carcinoma metastatic
     Dosage: ON 13/MAR/2021 , HE RECEIVED MOST RECENT DOSE OF BEVACIZUMAB.?ON 16/MAR/2021, LAST DOSE OF 800 MG WA
     Route: 042
     Dates: start: 20201027
  5. OMEPRAZOLE [Concomitant]
     Active Substance: OMEPRAZOLE
  6. IBUPROFEN [Concomitant]
     Active Substance: IBUPROFEN
     Indication: Pain
     Dates: start: 20201016
  7. RINOBANEDIF (SPAIN) [Concomitant]
     Indication: Epistaxis
     Dates: start: 20201217
  8. MOTILIUM [Concomitant]
     Active Substance: DOMPERIDONE
     Indication: Vomiting
     Dates: start: 20210316
  9. SODIUM BICARBONATE [Concomitant]
     Active Substance: SODIUM BICARBONATE
     Indication: Gastritis
     Dosage: 1 TBSP
     Route: 048
     Dates: start: 20210416
  10. ACETAMINOPHEN [Concomitant]
     Active Substance: ACETAMINOPHEN
     Indication: Prophylaxis
     Dates: start: 20210330, end: 20211122
  11. ACETAMINOPHEN [Concomitant]
     Active Substance: ACETAMINOPHEN
     Dates: start: 20210616
  12. ACETAMINOPHEN [Concomitant]
     Active Substance: ACETAMINOPHEN
     Dates: start: 20220103, end: 20220104
  13. HIBOR [Concomitant]
     Indication: Prophylaxis
     Dates: start: 20210330
  14. HIBOR [Concomitant]
     Dates: start: 20210616
  15. MAGNESIUM HYDROXIDE [Concomitant]
     Active Substance: MAGNESIUM HYDROXIDE
     Indication: Dyspepsia
     Route: 048
     Dates: start: 20210429
  16. METOCLOPRAMIDE [Concomitant]
     Active Substance: METOCLOPRAMIDE
     Indication: Nausea
     Route: 042
     Dates: start: 20210430
  17. PUNTUAL [Concomitant]
     Indication: Constipation
     Dosage: 8 GTT
     Route: 048
     Dates: start: 20210429
  18. METAMIZOL [Concomitant]
     Active Substance: METAMIZOLE SODIUM
     Indication: Prophylaxis
     Route: 042
     Dates: start: 20210429
  19. METAMIZOL [Concomitant]
     Active Substance: METAMIZOLE SODIUM
     Dates: start: 20220104, end: 20220105
  20. PANTOPRAZOLE SODIUM [Concomitant]
     Active Substance: PANTOPRAZOLE SODIUM
     Indication: Prophylaxis
     Dates: start: 20210427
  21. PANTOPRAZOLE SODIUM [Concomitant]
     Active Substance: PANTOPRAZOLE SODIUM
     Dates: start: 20211229, end: 20211230
  22. TRAZODONE HYDROCHLORIDE [Concomitant]
     Active Substance: TRAZODONE HYDROCHLORIDE
     Indication: Prophylaxis
     Dates: start: 20210616
  23. OCTREOTIDA [Concomitant]
     Indication: Pain
     Dates: start: 20210616
  24. TAPENTADOL [Concomitant]
     Active Substance: TAPENTADOL
     Indication: Pain
     Dates: start: 20210630
  25. FENTANYL [Concomitant]
     Active Substance: FENTANYL
     Indication: Pain
     Dates: start: 20210723
  26. AMLODIPINE [Concomitant]
     Active Substance: AMLODIPINE BESYLATE
     Indication: Hypertension
     Dates: start: 20210426, end: 20211227
  27. GABAPENTIN [Concomitant]
     Active Substance: GABAPENTIN
     Indication: Pain
     Dates: start: 20210714, end: 20220110
  28. POLARAMINE [Concomitant]
     Active Substance: DEXCHLORPHENIRAMINE MALEATE
     Indication: Prophylaxis
     Dates: start: 20211202, end: 20211202
  29. POLARAMINE [Concomitant]
     Active Substance: DEXCHLORPHENIRAMINE MALEATE
     Dates: start: 20211216, end: 20211216
  30. ONDANSETRON [Concomitant]
     Active Substance: ONDANSETRON
     Indication: Prophylaxis
     Dates: start: 20211202, end: 20211202
  31. ONDANSETRON [Concomitant]
     Active Substance: ONDANSETRON
     Dates: start: 20211216, end: 20211216
  32. DEXAMETHASONE [Concomitant]
     Active Substance: DEXAMETHASONE
     Indication: Prophylaxis
     Route: 048
     Dates: start: 20211216, end: 20220104
  33. TRAZODONE HYDROCHLORIDE [Concomitant]
     Active Substance: TRAZODONE HYDROCHLORIDE
     Indication: Prophylaxis
     Dates: start: 20211216, end: 20220110
  34. LORMETAZEPAM [Concomitant]
     Active Substance: LORMETAZEPAM
     Indication: Prophylaxis
     Dates: start: 20210109, end: 20210109
  35. HALOPERIDOL [Concomitant]
     Active Substance: HALOPERIDOL
     Indication: Confusional state
     Dates: start: 20211119
  36. FENTANYL [Concomitant]
     Active Substance: FENTANYL
     Dates: start: 20211123
  37. ZIVEREL [Concomitant]
     Indication: Prophylaxis
     Dates: start: 20211216
  38. DOMPERIDONE [Concomitant]
     Active Substance: DOMPERIDONE
     Dates: start: 20211216
  39. VANCOMYCIN [Concomitant]
     Active Substance: VANCOMYCIN
     Indication: Prophylaxis
     Dates: start: 20211228, end: 20211230
  40. EPHEDRINE [Concomitant]
     Active Substance: EPHEDRINE
     Indication: Prophylaxis
     Dates: start: 20220103, end: 20220103
  41. PROPOFOL [Concomitant]
     Active Substance: PROPOFOL
     Indication: Prophylaxis
     Dates: start: 20220103, end: 20220103

REACTIONS (2)
  - Intestinal obstruction [Recovered/Resolved]
  - Duodenal obstruction [Recovered/Resolved]

NARRATIVE: CASE EVENT DATE: 20211222
